FAERS Safety Report 4312209-6 (Version None)
Quarter: 2004Q1

REPORT INFORMATION
  Report Type: 
  Country: None (occurrence: None)
  Receive Date: 20040303
  Receipt Date: 20040220
  Transmission Date: 20041129
  Serious: Yes (Hospitalization)
  Sender: FDA-Public Use
  Company Number: 163-20785-03120103

PATIENT
  Age: 37 Year
  Sex: Female
  Weight: 69.4003 kg

DRUGS (10)
  1. THALOMID [Suspect]
     Indication: COLORECTAL CANCER METASTATIC
     Dosage: 400 MG, DAILY , ORAL  SEE IMAGE
     Route: 048
     Dates: start: 20031008, end: 20031014
  2. THALOMID [Suspect]
     Indication: COLORECTAL CANCER METASTATIC
     Dosage: 400 MG, DAILY , ORAL  SEE IMAGE
     Route: 048
     Dates: start: 20031015, end: 20031021
  3. THALOMID [Suspect]
     Indication: COLORECTAL CANCER METASTATIC
     Dosage: 400 MG, DAILY , ORAL  SEE IMAGE
     Route: 048
     Dates: start: 20031022, end: 20031028
  4. THALOMID [Suspect]
     Indication: COLORECTAL CANCER METASTATIC
     Dosage: 400 MG, DAILY , ORAL  SEE IMAGE
     Route: 048
     Dates: start: 20031029, end: 20031124
  5. THALOMID [Suspect]
     Indication: COLORECTAL CANCER METASTATIC
     Dosage: 400 MG, DAILY , ORAL  SEE IMAGE
     Route: 048
     Dates: start: 20031212, end: 20031218
  6. THALOMID [Suspect]
     Indication: COLORECTAL CANCER METASTATIC
     Dosage: 400 MG, DAILY , ORAL  SEE IMAGE
     Route: 048
     Dates: start: 20031219, end: 20031222
  7. THALOMID [Suspect]
     Indication: COLORECTAL CANCER METASTATIC
     Dosage: 400 MG, DAILY , ORAL  SEE IMAGE
     Route: 048
     Dates: end: 20040218
  8. THALOMID [Suspect]
     Indication: COLORECTAL CANCER METASTATIC
     Dosage: 400 MG, DAILY , ORAL  SEE IMAGE
     Route: 048
     Dates: start: 20040120
  9. XELODA [Suspect]
     Indication: COLORECTAL CANCER METASTATIC
     Dosage: 2500 MG, 14 DAYS ON AND 7 DAYS OFF, ORAL
     Route: 048
     Dates: start: 20031008, end: 20031125
  10. XELODA [Suspect]
     Indication: COLORECTAL CANCER METASTATIC
     Dosage: 2500 MG, 14 DAYS ON AND 7 DAYS OFF, ORAL
     Route: 048
     Dates: start: 20040120, end: 20040219

REACTIONS (16)
  - ACTIVATED PARTIAL THROMBOPLASTIN TIME PROLONGED [None]
  - ANAEMIA [None]
  - ASTHENIA [None]
  - BLOOD ALKALINE PHOSPHATASE INCREASED [None]
  - BLOOD BILIRUBIN INCREASED [None]
  - BRAIN ABSCESS [None]
  - COAGULOPATHY [None]
  - DILATATION INTRAHEPATIC DUCT ACQUIRED [None]
  - JAUNDICE [None]
  - NAUSEA [None]
  - PLATELET COUNT DECREASED [None]
  - PNEUMONIA [None]
  - PROTHROMBIN TIME PROLONGED [None]
  - STENT OCCLUSION [None]
  - TACHYCARDIA [None]
  - WHITE BLOOD CELL COUNT DECREASED [None]
